FAERS Safety Report 6058023-5 (Version None)
Quarter: 2009Q1

REPORT INFORMATION
  Report Type: 
  Country: None (occurrence: None)
  Receive Date: 20090127
  Receipt Date: 20090115
  Transmission Date: 20090719
  Serious: Yes (Death)
  Sender: FDA-Public Use
  Company Number: 2008US003490

PATIENT
  Age: 52 Year
  Sex: Male

DRUGS (3)
  1. PROGRAF [Suspect]
     Indication: SMALL INTESTINE TRANSPLANT
     Dosage: 7 MG, UID/QD
     Dates: start: 20081018, end: 20081214
  2. MILK OF MAGNESIA [Concomitant]
  3. NEXIUM [Concomitant]

REACTIONS (1)
  - PNEUMONIA [None]
